FAERS Safety Report 10698217 (Version 8)
Quarter: 2015Q2

REPORT INFORMATION
  Report Type: Spontaneous
  Country: US (occurrence: US)
  Receive Date: 20150108
  Receipt Date: 20150514
  Transmission Date: 20150821
  Serious: Yes (Other)
  Sender: FDA-Public Use
  Company Number: US-009507513-0903USA01553

PATIENT
  Sex: Male
  Weight: 69.84 kg

DRUGS (1)
  1. PROPECIA [Suspect]
     Active Substance: FINASTERIDE
     Indication: ANDROGENETIC ALOPECIA
     Dosage: 1 MG, QD
     Route: 048
     Dates: start: 20080307, end: 20141229

REACTIONS (35)
  - Weight increased [Unknown]
  - Anxiety [Unknown]
  - Melanocytic naevus [Unknown]
  - Pelvic pain [Unknown]
  - Erectile dysfunction [Unknown]
  - Ejaculation delayed [Unknown]
  - Sexual dysfunction [Unknown]
  - Anxiety [Unknown]
  - Anorgasmia [Unknown]
  - Cognitive disorder [Unknown]
  - Upper respiratory tract infection [Unknown]
  - Rash [Recovered/Resolved]
  - Suicidal ideation [Unknown]
  - Genital atrophy [Unknown]
  - Pupils unequal [Unknown]
  - Adverse event [Unknown]
  - Victim of sexual abuse [Unknown]
  - Malaise [Unknown]
  - Androgen deficiency [Unknown]
  - Drug ineffective [Unknown]
  - Depression [Unknown]
  - Penis disorder [Unknown]
  - Lymphadenopathy [Unknown]
  - Vitreous floaters [Unknown]
  - Thirst [Unknown]
  - Headache [Unknown]
  - Testicular pain [Unknown]
  - Calculus urinary [Unknown]
  - Gastrooesophageal reflux disease [Unknown]
  - Dysuria [Unknown]
  - Abdominal distension [Unknown]
  - Penile curvature [Unknown]
  - Panic attack [Unknown]
  - Ejaculation disorder [Unknown]
  - Libido decreased [Unknown]

NARRATIVE: CASE EVENT DATE: 200804
